FAERS Safety Report 10342205 (Version 1)
Quarter: 2014Q3

REPORT INFORMATION
  Report Type: Spontaneous
  Country: US (occurrence: None)
  Receive Date: 20140724
  Receipt Date: 20140724
  Transmission Date: 20150326
  Serious: Yes (Hospitalization)
  Sender: FDA-Public Use
  Company Number: None

PATIENT
  Age: 66 Year
  Sex: Male
  Weight: 91 kg

DRUGS (1)
  1. INLYTA [Suspect]
     Active Substance: AXITINIB
     Indication: RENAL CELL CARCINOMA
     Dosage: ONE TAB PO BID.
     Route: 048
     Dates: start: 20131220, end: 20140430

REACTIONS (2)
  - Convulsion [None]
  - Blindness [None]

NARRATIVE: CASE EVENT DATE: 20140430
